FAERS Safety Report 5374511-9 (Version None)
Quarter: 2007Q2

REPORT INFORMATION
  Report Type: 
  Country: None (occurrence: None)
  Receive Date: 20070629
  Receipt Date: 20070622
  Transmission Date: 20071010
  Serious: Yes (Death)
  Sender: FDA-Public Use
  Company Number: GB-ELI_LILLY_AND_COMPANY-GB200706005431

PATIENT
  Sex: Female

DRUGS (1)
  1. XIGRIS [Suspect]
     Dates: start: 20070501

REACTIONS (1)
  - SUBARACHNOID HAEMORRHAGE [None]
